FAERS Safety Report 21330448 (Version 1)
Quarter: 2022Q3

REPORT INFORMATION
  Report Type: Spontaneous
  Country: CN (occurrence: None)
  Receive Date: 20220913
  Receipt Date: 20220913
  Transmission Date: 20221027
  Serious: Yes (Hospitalization, Other)
  Sender: FDA-Public Use
  Company Number: 2022A314921

PATIENT
  Age: 68 Year
  Sex: Female

DRUGS (5)
  1. GEFITINIB [Suspect]
     Active Substance: GEFITINIB
     Indication: Lung adenocarcinoma
     Route: 048
     Dates: start: 201610
  2. OSIMERTINIB [Suspect]
     Active Substance: OSIMERTINIB
     Indication: Lung adenocarcinoma
     Route: 048
     Dates: start: 201909
  3. PEMETREXED [Concomitant]
     Active Substance: PEMETREXED
     Dosage: 800.0MG UNKNOWN
     Route: 065
  4. NEDAPLATIN [Concomitant]
     Active Substance: NEDAPLATIN
     Dosage: 100.0MG UNKNOWN
     Route: 065
  5. AVASTIN [Concomitant]
     Active Substance: BEVACIZUMAB
     Dosage: 400.0MG UNKNOWN
     Route: 065

REACTIONS (4)
  - Drug resistance [Unknown]
  - EGFR gene mutation [Unknown]
  - Malignant neoplasm progression [Unknown]
  - Metastases to lung [Unknown]
